FAERS Safety Report 16822524 (Version 2)
Quarter: 2019Q3

REPORT INFORMATION
  Report Type: Spontaneous
  Country: US (occurrence: US)
  Receive Date: 20190726
  Receipt Date: 20190726
  Transmission Date: 20191005
  Serious: Yes (Hospitalization)
  Sender: FDA-Public Use
  Company Number: None

PATIENT
  Age: 53 Year
  Sex: Male
  Weight: 81.6 kg

DRUGS (19)
  1. PROCHLORPERAZINE (COMPAZINE) [Concomitant]
  2. COLACE [Concomitant]
     Active Substance: DOCUSATE SODIUM
  3. NIVOLUMAB 240 MG [Suspect]
     Active Substance: NIVOLUMAB
     Dosage: ?          OTHER FREQUENCY:02W;?
     Route: 042
     Dates: start: 20190515
  4. CHANTIX [Concomitant]
     Active Substance: VARENICLINE TARTRATE
  5. TRAZODONE (DESYREL) [Concomitant]
  6. XARELTO [Concomitant]
     Active Substance: RIVAROXABAN
  7. SENNA (SENOKOT) [Concomitant]
  8. LISINOPRIL (PRINIVIL, ZESTRIL) [Concomitant]
     Active Substance: LISINOPRIL
  9. BACTROBAN [Concomitant]
     Active Substance: MUPIROCIN\MUPIROCIN CALCIUM
  10. TRAMADOL (ULTRAM-ER) [Concomitant]
  11. XANAX [Concomitant]
     Active Substance: ALPRAZOLAM
  12. RADIATION [Concomitant]
     Active Substance: RADIATION THERAPY
  13. IPILIMUMAB 1MG/KG [Suspect]
     Active Substance: IPILIMUMAB
     Route: 042
     Dates: start: 20190401
  14. MELATONIN [Concomitant]
     Active Substance: MELATONIN
  15. DIPHENHYDRAMINE (BENDARYL) [Concomitant]
  16. NORVASC [Concomitant]
     Active Substance: AMLODIPINE BESYLATE
  17. ROXICODONE [Concomitant]
     Active Substance: OXYCODONE HYDROCHLORIDE
  18. TYLENOL [Concomitant]
     Active Substance: ACETAMINOPHEN
  19. HYDROXYZINE HCL (ATARAX) [Concomitant]

REACTIONS (10)
  - Hypotension [None]
  - Incision site erythema [None]
  - Dizziness [None]
  - Incision site abscess [None]
  - Wound [None]
  - Fatigue [None]
  - Chills [None]
  - Purulent discharge [None]
  - Malaise [None]
  - Incision site discharge [None]

NARRATIVE: CASE EVENT DATE: 20190725
